FAERS Safety Report 21172095 (Version 1)
Quarter: 2022Q3

REPORT INFORMATION
  Report Type: Report from Study
  Country: US (occurrence: US)
  Receive Date: 20220804
  Receipt Date: 20220804
  Transmission Date: 20221027
  Serious: Yes (Other)
  Sender: FDA-Public Use
  Company Number: US-BoehringerIngelheim-2021-BI-132355

PATIENT
  Age: 65 Year
  Sex: Male
  Weight: 74.3 kg

DRUGS (5)
  1. GILOTRIF [Suspect]
     Active Substance: AFATINIB
     Indication: Non-small cell lung cancer
     Route: 048
     Dates: start: 20211009, end: 20220609
  2. ELIQUIS [Concomitant]
     Active Substance: APIXABAN
     Indication: Product used for unknown indication
  3. DEXAMETHASONE [Concomitant]
     Active Substance: DEXAMETHASONE
     Indication: Product used for unknown indication
  4. KEPPRA [Concomitant]
     Active Substance: LEVETIRACETAM
     Indication: Product used for unknown indication
  5. LIPITOR [Concomitant]
     Active Substance: ATORVASTATIN CALCIUM
     Indication: Product used for unknown indication

REACTIONS (5)
  - Malignant neoplasm progression [Recovered/Resolved]
  - Joint swelling [Recovering/Resolving]
  - Rash [Recovering/Resolving]
  - Diarrhoea [Recovered/Resolved]
  - Growth of eyelashes [Recovered/Resolved]

NARRATIVE: CASE EVENT DATE: 20210929
